FAERS Safety Report 9262598 (Version 1)
Quarter: 2013Q2

REPORT INFORMATION
  Report Type: Spontaneous
  Country: DE (occurrence: None)
  Receive Date: 20130426
  Receipt Date: 20130426
  Transmission Date: 20140414
  Serious: Yes (Death, Hospitalization, Other)
  Sender: FDA-Public Use
  Company Number: GER/GER/13/0029055

PATIENT
  Age: 91 Year
  Sex: Female

DRUGS (13)
  1. CIPROFLOXACIN [Suspect]
     Indication: INFECTED SKIN ULCER
     Route: 048
     Dates: start: 20120414, end: 20120922
  2. TRUXAL [Suspect]
     Route: 048
  3. TAVOR [Suspect]
     Indication: PRODUCT USED FOR UNKNOWN INDICATION
     Route: 048
     Dates: start: 20120914, end: 20120919
  4. ZYPREXA (OLANZAPINE) [Suspect]
     Indication: PRODUCT USED FOR UNKNOWN INDICATION
     Route: 048
     Dates: start: 20120917, end: 20120920
  5. RAMIPRIL [Concomitant]
  6. BISOPROLOL [Concomitant]
  7. ALLOPURINOL [Concomitant]
  8. OMEPRAZOLE [Concomitant]
  9. PANTOPRAZOLE [Concomitant]
  10. METAMIZOL [Concomitant]
  11. ACETYLSALICYLIC ACID [Concomitant]
  12. INSULIN [Concomitant]
  13. FUROSEMIDE [Concomitant]

REACTIONS (14)
  - Restlessness [None]
  - Aggression [None]
  - Delirium [None]
  - Confusional state [None]
  - Cardiac failure [None]
  - Tachycardia [None]
  - Drug interaction [None]
  - Gamma-glutamyltransferase increased [None]
  - Blood alkaline phosphatase increased [None]
  - Blood sodium increased [None]
  - Blood pressure decreased [None]
  - Atrial fibrillation [None]
  - Ventricular extrasystoles [None]
  - Respiratory arrest [None]
